FAERS Safety Report 10582207 (Version 3)
Quarter: 2019Q1

REPORT INFORMATION
  Report Type: Spontaneous
  Country: CA (occurrence: CA)
  Receive Date: 20141113
  Receipt Date: 20190111
  Transmission Date: 20190417
  Serious: Yes (Other)
  Sender: FDA-Public Use
  Company Number: CA-PFIZER INC-2014307189

PATIENT
  Age: 19 Year
  Sex: Female

DRUGS (5)
  1. LYRICA [Suspect]
     Active Substance: PREGABALIN
     Indication: POST HERPETIC NEURALGIA
     Dosage: 100 MG, DAILY
     Dates: start: 201312
  2. LIDOCAINE. [Suspect]
     Active Substance: LIDOCAINE
     Indication: POST HERPETIC NEURALGIA
     Dosage: UNK (HIGHEST DOSAGE AVAILABLE FOR HER WEIGHT)
     Dates: start: 20140417
  3. NAPROXEN. [Suspect]
     Active Substance: NAPROXEN
     Indication: POST HERPETIC NEURALGIA
     Dosage: UNK
     Dates: start: 201312, end: 201401
  4. GABAPENTIN. [Suspect]
     Active Substance: GABAPENTIN
     Indication: POST HERPETIC NEURALGIA
     Dosage: UNK
     Dates: start: 2013, end: 2013
  5. GABAPENTIN. [Suspect]
     Active Substance: GABAPENTIN
     Dosage: 500 MG, 3X/DAY
     Dates: start: 2013, end: 201401

REACTIONS (6)
  - Drug ineffective [Unknown]
  - Fatigue [Unknown]
  - Confusional state [Unknown]
  - Staphylococcal infection [Unknown]
  - Amnesia [Unknown]
  - Asthma [Not Recovered/Not Resolved]

NARRATIVE: CASE EVENT DATE: 2013
